FAERS Safety Report 6483567-1 (Version None)
Quarter: 2009Q4

REPORT INFORMATION
  Report Type: 
  Country: None (occurrence: None)
  Receive Date: 20091209
  Receipt Date: 20091209
  Transmission Date: 20100525
  Serious: Yes (Other)
  Sender: FDA-Public Use
  Company Number: US-PFIZER INC-2009289146

PATIENT
  Sex: Female
  Weight: 52.154 kg

DRUGS (6)
  1. LIPITOR [Suspect]
     Indication: BLOOD CHOLESTEROL INCREASED
     Dosage: 20 MG, 1X/DAY
     Dates: start: 20090201, end: 20090616
  2. LOVAZA [Concomitant]
     Dosage: UNK
  3. FISH OIL [Concomitant]
     Dosage: UNK
  4. ACETYLSALICYLIC ACID [Concomitant]
     Dosage: 81 MG, UNK
  5. PLAVIX [Concomitant]
  6. MULTI-VITAMINS [Concomitant]
     Dosage: UNK

REACTIONS (3)
  - ABDOMINAL DISTENSION [None]
  - CONSTIPATION [None]
  - DEVICE OCCLUSION [None]
